FAERS Safety Report 23742281 (Version 1)
Quarter: 2024Q2

REPORT INFORMATION
  Report Type: Other
  Country: FR (occurrence: FR)
  Receive Date: 20240415
  Receipt Date: 20240415
  Transmission Date: 20240715
  Serious: Yes (Hospitalization, Other)
  Sender: FDA-Public Use
  Company Number: None

PATIENT
  Age: 41 Year
  Sex: Female

DRUGS (2)
  1. IBUPROFEN [Suspect]
     Active Substance: IBUPROFEN
     Indication: Product used for unknown indication
     Dosage: UNK
     Route: 065
  2. DOLIPRANE [Suspect]
     Active Substance: ACETAMINOPHEN
     Indication: Product used for unknown indication
     Dosage: UNK
     Route: 065

REACTIONS (9)
  - Cataract [Unknown]
  - Toxic epidermal necrolysis [Unknown]
  - Lacrimation decreased [Unknown]
  - Psychiatric symptom [Unknown]
  - Eye injury [Unknown]
  - Eye pain [Unknown]
  - Eye infection [Unknown]
  - Visual acuity reduced [Unknown]
  - Dry eye [Unknown]
